FAERS Safety Report 7303356-5 (Version None)
Quarter: 2011Q1

REPORT INFORMATION
  Report Type: 
  Country: None (occurrence: None)
  Receive Date: 20110221
  Receipt Date: 20110211
  Transmission Date: 20110831
  Serious: Yes (Hospitalization)
  Sender: FDA-Public Use
  Company Number: US-NOVOPROD-323225

PATIENT
  Sex: Male

DRUGS (3)
  1. NOVOSEVEN RT [Suspect]
     Dosage: 14000 U, Q 6 HOURS AS NEEDED
     Route: 042
  2. NOVOSEVEN RT [Suspect]
     Indication: HAEMOPHILIA
     Dosage: 14000 U, Q 6 HOURS AS NEEDED
     Route: 042
  3. NOVOSEVEN RT [Suspect]
     Dosage: 14000 U, Q 6 HOURS AS NEEDED
     Route: 042

REACTIONS (2)
  - MUSCULOSKELETAL PAIN [None]
  - HAEMORRHAGE [None]
